FAERS Safety Report 7630917-6 (Version None)
Quarter: 2011Q3

REPORT INFORMATION
  Report Type: 
  Country: None (occurrence: None)
  Receive Date: 20110725
  Receipt Date: 20110713
  Transmission Date: 20111222
  Serious: Yes (Other)
  Sender: FDA-Public Use
  Company Number: JP-BRISTOL-MYERS SQUIBB COMPANY-15918634

PATIENT
  Age: 44 Year
  Sex: Male

DRUGS (7)
  1. OMEPRAZOLE [Concomitant]
  2. ENALAPRIL MALEATE [Concomitant]
     Route: 048
  3. CRESTOR [Concomitant]
     Route: 048
  4. METFORMIN HCL [Suspect]
     Indication: DIABETES MELLITUS
     Route: 048
     Dates: start: 20110518, end: 20110614
  5. TENORMIN [Concomitant]
     Route: 048
  6. ACTOS [Concomitant]
     Route: 048
  7. GASMOTIN [Concomitant]
     Route: 048

REACTIONS (1)
  - BLOOD CREATINE PHOSPHOKINASE INCREASED [None]
